FAERS Safety Report 4965131-6 (Version None)
Quarter: 2006Q1

REPORT INFORMATION
  Report Type: 
  Country: None (occurrence: None)
  Receive Date: 20060201
  Receipt Date: 20051012
  Transmission Date: 20060701
  Serious: No
  Sender: FDA-Public Use
  Company Number: 2005PV003117

PATIENT
  Age: 73 Year
  Sex: Female
  Weight: 79.3795 kg

DRUGS (11)
  1. BYETTA [Suspect]
     Indication: DIABETES MELLITUS
     Dosage: 5 MCG;BID;SC
     Route: 058
     Dates: start: 20050815, end: 20050901
  2. GLUCOPHAGE [Concomitant]
  3. DIOVAN HCT [Concomitant]
  4. TAMABACOR [Concomitant]
  5. TENORMIN [Concomitant]
  6. PRINIVIL [Concomitant]
  7. NORVASC [Concomitant]
  8. CENTRUM SILVER [Concomitant]
  9. OSCAL 500-D [Concomitant]
  10. ASPIRIN [Concomitant]
  11. LIPITOR [Concomitant]

REACTIONS (6)
  - ABDOMINAL DISTENSION [None]
  - ABDOMINAL PAIN [None]
  - CONSTIPATION [None]
  - DECREASED APPETITE [None]
  - NAUSEA [None]
  - VOMITING [None]
